FAERS Safety Report 12757292 (Version 2)
Quarter: 2017Q4

REPORT INFORMATION
  Report Type: Spontaneous
  Country: US (occurrence: US)
  Receive Date: 20160919
  Receipt Date: 20171222
  Transmission Date: 20180320
  Serious: No
  Sender: FDA-Public Use
  Company Number: US-ASTRAZENECA-2016SE96116

PATIENT
  Sex: Female

DRUGS (20)
  1. LIPITOR [Suspect]
     Active Substance: ATORVASTATIN CALCIUM
     Route: 048
     Dates: start: 20141119
  2. LORAZEPAM. [Concomitant]
     Active Substance: LORAZEPAM
     Indication: INSOMNIA
     Dosage: 0.5MG AS REQUIRED
     Route: 048
  3. LISINOPRIL. [Suspect]
     Active Substance: LISINOPRIL
     Route: 048
     Dates: start: 20150909
  4. EFFEXOR XR [Suspect]
     Active Substance: VENLAFAXINE HYDROCHLORIDE
     Route: 048
     Dates: start: 20141105
  5. ALBUTEROL. [Concomitant]
     Active Substance: ALBUTEROL
     Indication: CHEST DISCOMFORT
     Dosage: 90 MCG 2 PUFF EVERY 4 - 6 HOURS AS REQUIRED
     Route: 055
     Dates: start: 20151014
  6. DULERA [Concomitant]
     Active Substance: FORMOTEROL FUMARATE DIHYDRATE\MOMETASONE FUROATE
     Dosage: INHALE 2 PUFFS INTO THE LUNGS TWO TIMES A DAY
     Route: 055
  7. ANASTROZOLE. [Suspect]
     Active Substance: ANASTROZOLE
     Route: 048
  8. ATENOLOL. [Suspect]
     Active Substance: ATENOLOL
     Route: 048
     Dates: start: 20150615
  9. ALBUTEROL. [Concomitant]
     Active Substance: ALBUTEROL
     Indication: WHEEZING
     Dosage: 2.5 MG /3 ML (0.083 %) EVERY 4 - 6 HOURS
     Route: 055
     Dates: start: 20141101
  10. CALCIUM CARBONATE. [Concomitant]
     Active Substance: CALCIUM CARBONATE
     Dosage: 1500 MG (600 MG ELEMENTAL)-400 UNITS
     Route: 048
     Dates: start: 20100406
  11. LORAZEPAM. [Concomitant]
     Active Substance: LORAZEPAM
     Indication: ANXIETY
     Dosage: 0.5MG AS REQUIRED
     Route: 048
  12. METFORMIN [Concomitant]
     Active Substance: METFORMIN HYDROCHLORIDE
     Route: 065
  13. ALBUTEROL. [Concomitant]
     Active Substance: ALBUTEROL
     Indication: CHEST DISCOMFORT
     Dosage: 2.5 MG /3 ML (0.083 %) EVERY 4 - 6 HOURS
     Route: 055
     Dates: start: 20141101
  14. ALBUTEROL. [Concomitant]
     Active Substance: ALBUTEROL
     Indication: WHEEZING
     Dosage: 90 MCG 2 PUFF EVERY 4 - 6 HOURS AS REQUIRED
     Route: 055
     Dates: start: 20151014
  15. PREDNISONE. [Concomitant]
     Active Substance: PREDNISONE
     Route: 048
     Dates: start: 20150924
  16. LORAZEPAM. [Concomitant]
     Active Substance: LORAZEPAM
     Indication: NAUSEA
     Dosage: 0.5MG AS REQUIRED
     Route: 048
  17. IBRANCE [Suspect]
     Active Substance: PALBOCICLIB
     Dosage: TAKE ONE CAPSULE (125 MG TOTAL) BY MOUTH DAILY. TAKE FOR 21 DAYS FOLLOWED BY 7 DAYS OFF
     Route: 048
     Dates: start: 20160823
  18. NORVASC [Suspect]
     Active Substance: AMLODIPINE BESYLATE
     Route: 048
     Dates: start: 20141105
  19. GLYBURIDE. [Concomitant]
     Active Substance: GLYBURIDE
     Route: 048
  20. OXYCODONE [Concomitant]
     Active Substance: OXYCODONE
     Dosage: 5.0MG AS REQUIRED

REACTIONS (2)
  - Abdominal discomfort [Unknown]
  - Drug hypersensitivity [Unknown]
